FAERS Safety Report 16244869 (Version 1)
Quarter: 2019Q2

REPORT INFORMATION
  Report Type: Other
  Country: IT (occurrence: IT)
  Receive Date: 20190426
  Receipt Date: 20190426
  Transmission Date: 20190711
  Serious: Yes (Other)
  Sender: FDA-Public Use
  Company Number: IT-SERVIER-S19004027

PATIENT

DRUGS (4)
  1. PEGASPARGASE [Suspect]
     Active Substance: PEGASPARGASE
     Indication: LEUKAEMIA
     Dosage: 1275 DF, ONE DOSE
     Route: 042
     Dates: start: 20190411, end: 20190411
  2. TN UNSPECIFIED [FLUCONAZOLE] [Concomitant]
     Active Substance: FLUCONAZOLE
     Indication: PROPHYLAXIS
     Dosage: 100 MG, QD
     Route: 048
     Dates: start: 20190321
  3. TN UNSPECIFIED [IMATINIB MESILATE] [Concomitant]
     Active Substance: IMATINIB MESYLATE
     Indication: LEUKAEMIA
     Dosage: 400 MG, QD
     Route: 048
     Dates: start: 20190408
  4. TN UNSPECIFIED [ACICLOVIR] [Concomitant]
     Active Substance: ACYCLOVIR
     Indication: VIRAL INFECTION
     Dosage: 2400 MG, QD
     Route: 048
     Dates: start: 20190321

REACTIONS (3)
  - Oxygen saturation [Recovered/Resolved]
  - Chest pain [Recovered/Resolved]
  - Dyspnoea [Recovered/Resolved]

NARRATIVE: CASE EVENT DATE: 20190411
